FAERS Safety Report 8577739-X (Version None)
Quarter: 2012Q3

REPORT INFORMATION
  Report Type: 
  Country: None (occurrence: None)
  Receive Date: 20120808
  Receipt Date: 20120727
  Transmission Date: 20120928
  Serious: Yes (Other)
  Sender: FDA-Public Use
  Company Number: US-ACCORD-014287

PATIENT

DRUGS (3)
  1. PARAPLATIN [Suspect]
     Indication: RETINOBLASTOMA
     Dosage: 18.6 MG/KG ONCE OR 14 MG/KG DAILY X 2 DAYS, MONTHLY CYCLE. TOTAL 6 CYCLES
  2. ETOPOSIDE [Suspect]
     Indication: RETINOBLASTOMA
     Dosage: MONTHLY CYCLE OF 5 MG/KG DAILY FOR 2 DAYS OR 6 MG/KG DAILY FOR 2 DAYS. TOTAL 6 CYCLES
  3. VINCRISTINE [Suspect]
     Indication: RETINOBLASTOMA
     Dosage: 0.05 MG/KG ONCE. MONTHLY CYCLE. RECEIVED TOTAL 6 CYCLES

REACTIONS (3)
  - MALIGNANT MELANOMA [None]
  - RHABDOMYOSARCOMA [None]
  - OFF LABEL USE [None]
